FAERS Safety Report 6782937-1 (Version None)
Quarter: 2010Q2

REPORT INFORMATION
  Report Type: 
  Country: None (occurrence: None)
  Receive Date: 20100622
  Receipt Date: 20100610
  Transmission Date: 20101027
  Serious: Yes (Hospitalization)
  Sender: FDA-Public Use
  Company Number: NL-JNJFOC-20061000946

PATIENT
  Weight: 79 kg

DRUGS (3)
  1. INFLIXIMAB [Suspect]
     Indication: CROHN'S DISEASE
     Route: 042
  2. INFLIXIMAB [Suspect]
     Route: 042
  3. METHOTREXATE [Concomitant]
     Indication: CROHN'S DISEASE

REACTIONS (4)
  - ILEAL STENOSIS [None]
  - IMPAIRED HEALING [None]
  - POSTOPERATIVE ABSCESS [None]
  - POSTOPERATIVE HERNIA [None]
